FAERS Safety Report 18269589 (Version 1)
Quarter: 2020Q3

REPORT INFORMATION
  Report Type: Spontaneous
  Country: DE (occurrence: DE)
  Receive Date: 20200916
  Receipt Date: 20200916
  Transmission Date: 20201103
  Serious: Yes (Hospitalization)
  Sender: FDA-Public Use
  Company Number: DE-ROCHE-2605567

PATIENT
  Age: 63 Year
  Sex: Male

DRUGS (11)
  1. SPIRIVA [Concomitant]
     Active Substance: TIOTROPIUM BROMIDE MONOHYDRATE
  2. CYCLOPHOSPHAMIDE. [Suspect]
     Active Substance: CYCLOPHOSPHAMIDE
     Indication: PRODUCT USED FOR UNKNOWN INDICATION
     Route: 065
  3. COTRIM FORTE [Concomitant]
     Active Substance: SULFAMETHOXAZOLE\TRIMETHOPRIM
     Dosage: 800|160 MG/3XWOCHE, 1?0?0?0
  4. ALLOPURINOL. [Concomitant]
     Active Substance: ALLOPURINOL
     Dosage: 100 MG, 1?0?1?0
  5. RITUXIMAB. [Suspect]
     Active Substance: RITUXIMAB
     Indication: PRODUCT USED FOR UNKNOWN INDICATION
     Route: 065
  6. ATMADISC [Concomitant]
     Active Substance: FLUTICASONE PROPIONATE\SALMETEROL XINAFOATE
  7. IBUPROFEN. [Concomitant]
     Active Substance: IBUPROFEN
  8. ELIQUIS [Concomitant]
     Active Substance: APIXABAN
     Dosage: 5 MG, 1?0?1?0
  9. PANTOPRAZOLE [Concomitant]
     Active Substance: PANTOPRAZOLE
     Dosage: 40 MG, 1?0?0?0
  10. FLUDARABINE [Suspect]
     Active Substance: FLUDARABINE PHOSPHATE
     Indication: PRODUCT USED FOR UNKNOWN INDICATION
     Route: 065
  11. DEKRISTOL [Concomitant]
     Active Substance: CHOLECALCIFEROL
     Dosage: 20.000 IE / WOCHE, MONTAGS

REACTIONS (2)
  - Pyrexia [Recovering/Resolving]
  - General physical health deterioration [Recovering/Resolving]
